FAERS Safety Report 5203137-2 (Version None)
Quarter: 2006Q4

REPORT INFORMATION
  Report Type: 
  Country: None (occurrence: None)
  Receive Date: 20061016
  Receipt Date: 20051011
  Transmission Date: 20070319
  Serious: Yes (Other)
  Sender: FDA-Public Use
  Company Number: 2005141576

PATIENT
  Sex: Female
  Weight: 65.7716 kg

DRUGS (3)
  1. NEURONTIN [Suspect]
     Indication: DIABETIC NEUROPATHY
     Dosage: 1200 MG
  2. LIPITOR [Concomitant]
  3. GLUCOPHAGE [Concomitant]

REACTIONS (4)
  - DRUG INEFFECTIVE [None]
  - HAEMORRHAGE [None]
  - HYPOAESTHESIA [None]
  - LIMB INJURY [None]
